FAERS Safety Report 9862380 (Version 1)
Quarter: 2014Q1

REPORT INFORMATION
  Report Type: Not Available
  Country: GB (occurrence: GB)
  Receive Date: 20140203
  Receipt Date: 20140203
  Transmission Date: 20141002
  Serious: Yes (Other)
  Sender: FDA-Public Use
  Company Number: GB-ASTELLAS-2014EU000783

PATIENT
  Age: 49 Year
  Sex: Female
  Weight: 76 kg

DRUGS (6)
  1. YM178 [Suspect]
     Indication: NEUROGENIC BLADDER
     Dosage: 50 MG, UID/QD
     Route: 048
     Dates: start: 20131207, end: 20140108
  2. AMLODIPINE BESILATE [Suspect]
     Indication: HEMIPLEGIC MIGRAINE
     Dosage: 5 MG, UNKNOWN/D
     Route: 048
     Dates: end: 20140108
  3. AMLODIPINE BESILATE [Suspect]
     Indication: HYPERTENSION
  4. EXTAVIA [Concomitant]
     Dosage: UNK
     Route: 065
  5. FULTIUM [Concomitant]
     Dosage: UNK
     Route: 065
  6. HYDROXOCOBALAMIN [Concomitant]
     Dosage: UNK
     Route: 065

REACTIONS (8)
  - Palpitations [Recovered/Resolved]
  - Hemiplegic migraine [Recovered/Resolved]
  - Hot flush [Recovered/Resolved]
  - Hypertension [Recovered/Resolved]
  - Hypoaesthesia [Unknown]
  - Erythema [Recovered/Resolved]
  - Pollakiuria [Recovered/Resolved]
  - Blindness [Unknown]
